FAERS Safety Report 24097142 (Version 4)
Quarter: 2025Q1

REPORT INFORMATION
  Report Type: Spontaneous
  Country: US (occurrence: US)
  Receive Date: 20240716
  Receipt Date: 20250123
  Transmission Date: 20250408
  Serious: Yes (Other)
  Sender: PFIZER
  Company Number: US-PFIZER INC-202400213890

PATIENT
  Age: 74 Year
  Sex: Female
  Weight: 77.098 kg

DRUGS (12)
  1. IBRANCE [Suspect]
     Active Substance: PALBOCICLIB
     Indication: Breast cancer female
     Route: 048
     Dates: start: 20240521
  2. ANASTROZOLE [Concomitant]
     Active Substance: ANASTROZOLE
  3. ATORVASTATIN [Concomitant]
     Active Substance: ATORVASTATIN
  4. BENZONATATE [Concomitant]
     Active Substance: BENZONATATE
  5. GVOKE [Concomitant]
     Active Substance: GLUCAGON
  6. LEVOTHYROXINE [Concomitant]
     Active Substance: LEVOTHYROXINE
  7. METRONIDAZOLE [Concomitant]
     Active Substance: METRONIDAZOLE
  8. MUPIROCIN [Concomitant]
     Active Substance: MUPIROCIN
  9. NOVOLOG [Concomitant]
     Active Substance: INSULIN ASPART
  10. OXYBUTYNIN [Concomitant]
     Active Substance: OXYBUTYNIN
  11. OLMESARTAN [Concomitant]
     Active Substance: OLMESARTAN
  12. TRESIBA [Concomitant]
     Active Substance: INSULIN DEGLUDEC

REACTIONS (2)
  - Constipation [Not Recovered/Not Resolved]
  - Stomatitis [Unknown]

NARRATIVE: CASE EVENT DATE: 20240101
